FAERS Safety Report 5286558-1 (Version None)
Quarter: 2007Q2

REPORT INFORMATION
  Report Type: 
  Country: None (occurrence: None)
  Receive Date: 20070404
  Receipt Date: 20070330
  Transmission Date: 20071010
  Serious: Yes (Life-Threatening, Hospitalization)
  Sender: FDA-Public Use
  Company Number: JP-ELI_LILLY_AND_COMPANY-JP200612004173

PATIENT
  Age: 69 Year
  Sex: Male
  Weight: 75 kg

DRUGS (10)
  1. OLANZAPINE [Suspect]
     Indication: SCHIZOPHRENIA
     Dosage: 10 MG, 2/D
     Route: 048
  2. HALCION [Concomitant]
     Dosage: 0.25 MG, DAILY (1/D)
     Route: 048
  3. VEGETAMIN A [Concomitant]
     Dosage: 1 D/F, DAILY (1/D)
     Route: 048
  4. VEGETAMIN B [Concomitant]
     Dosage: 1 D/F, DAILY (1/D)
     Route: 048
  5. SEPAZON [Concomitant]
     Dosage: 1 MG, 3/D
     Route: 048
  6. MAGMITT [Concomitant]
     Dosage: 1 D/F, 2/D
     Route: 048
  7. MAGLAX [Concomitant]
     Dosage: 330 MG, 2/D
  8. PRIMPERAN                               /SCH/ [Concomitant]
     Dosage: 5 MG, 2/D
  9. GASMOTIN [Concomitant]
     Dosage: 5 MG, 3/D
  10. PURSENNID [Concomitant]
     Dosage: 24 MG, AS NEEDED

REACTIONS (2)
  - DEEP VEIN THROMBOSIS [None]
  - TACHYCARDIA [None]
